FAERS Safety Report 20713674 (Version 4)
Quarter: 2022Q2

REPORT INFORMATION
  Report Type: Spontaneous
  Country: US (occurrence: US)
  Receive Date: 20220415
  Receipt Date: 20220516
  Transmission Date: 20220721
  Serious: No
  Sender: FDA-Public Use
  Company Number: US-AIMMUNE THERAPEUTICS, INC.-2022AIMT00294

PATIENT

DRUGS (5)
  1. PALFORZIA [Interacting]
     Active Substance: PEANUT
     Indication: Food allergy
     Dosage: 80 MG, ONCE, LAST DOSE PRIOR EVENT ONSET
     Route: 048
     Dates: start: 20220413, end: 20220413
  2. PALFORZIA [Interacting]
     Active Substance: PEANUT
     Dosage: 40 MG, 1X/DAY, DECRESED
     Route: 048
     Dates: start: 20220414, end: 20220426
  3. PALFORZIA [Interacting]
     Active Substance: PEANUT
     Dosage: 80 MG, 1X/DAY, RE-UPDOSE
     Route: 048
     Dates: start: 20220427, end: 20220502
  4. PALFORZIA [Interacting]
     Active Substance: PEANUT
     Dosage: 80 MG, ONCE, LAST DOSE PRIOR ANAPHYLACTIC REACTION
     Route: 048
     Dates: start: 20220429, end: 20220429
  5. ZYRTEC [Concomitant]
     Active Substance: CETIRIZINE HYDROCHLORIDE
     Indication: Seasonal allergy
     Dosage: UNK

REACTIONS (13)
  - Dizziness [Unknown]
  - Chest discomfort [Unknown]
  - Nasal congestion [Unknown]
  - Malaise [Unknown]
  - Performance status decreased [Unknown]
  - Throat irritation [Unknown]
  - Oral pruritus [Unknown]
  - Anaphylactic reaction [Unknown]
  - Dyspepsia [Unknown]
  - Abdominal pain [Unknown]
  - Throat irritation [Unknown]
  - Throat tightness [Unknown]
  - Abdominal pain upper [Unknown]

NARRATIVE: CASE EVENT DATE: 20220413
